FAERS Safety Report 17453077 (Version 1)
Quarter: 2020Q1

REPORT INFORMATION
  Report Type: Spontaneous
  Country: US (occurrence: US)
  Receive Date: 20200224
  Receipt Date: 20200224
  Transmission Date: 20200409
  Serious: No
  Sender: FDA-Public Use
  Company Number: US-ASTRAZENECA-2020SE15237

PATIENT
  Sex: Male

DRUGS (2)
  1. GLIPASIDE [Concomitant]
     Dosage: PRESCRIBED GLIPIZIDE 10MG AND 5MG.TAKES 10MG DAILY WHEN HIS BLOOD SUGAR IS 110 AND 5 WHEN IT IS 100.
  2. BYDUREON BCISE [Suspect]
     Active Substance: EXENATIDE
     Indication: GLYCOSYLATED HAEMOGLOBIN INCREASED
     Route: 065
     Dates: start: 20200122

REACTIONS (1)
  - Oropharyngeal discomfort [Not Recovered/Not Resolved]

NARRATIVE: CASE EVENT DATE: 20200122
